FAERS Safety Report 7627849-6 (Version None)
Quarter: 2011Q3

REPORT INFORMATION
  Report Type: 
  Country: None (occurrence: None)
  Receive Date: 20110721
  Receipt Date: 20110708
  Transmission Date: 20111222
  Serious: Yes (Hospitalization)
  Sender: FDA-Public Use
  Company Number: KR-AMGEN-KORSP2011035720

PATIENT
  Age: 70 Year
  Sex: Female

DRUGS (16)
  1. CALCIUM ACETATE [Concomitant]
     Dosage: UNCERTAINTY
     Route: 065
  2. BENEXATE HYDROCHLORIDE BETADEX [Concomitant]
     Dosage: UNK
     Route: 065
  3. CELECOXIB [Concomitant]
     Dosage: UNK
     Route: 065
  4. CALCIUM ACETATE [Concomitant]
     Dosage: UNK
     Route: 065
  5. CALCIUM ACETATE [Concomitant]
     Dosage: UNCERTAINTY
     Route: 065
  6. CALCITRIOL [Concomitant]
     Dosage: UNK
     Route: 065
  7. NIZATIDINE [Concomitant]
     Dosage: UNK
     Route: 065
  8. CALCIUM ACETATE [Concomitant]
     Dosage: UNCERTAINTY
     Route: 065
  9. ITOPRIDE HYDROCHLORIDE [Concomitant]
     Dosage: UNK
     Route: 065
  10. EPOGEN [Concomitant]
     Dosage: UNK
     Route: 065
  11. CARVEDILOL [Concomitant]
     Dosage: UNK
     Route: 065
  12. ACETAMINOPHEN [Concomitant]
     Dosage: UNK
     Route: 065
  13. FAMOTIDINE [Concomitant]
     Dosage: UNK
     Route: 065
  14. INDOBUFEN [Concomitant]
     Dosage: UNK
     Route: 065
  15. CINACALCET HYDROCHLORIDE [Suspect]
     Indication: SECONDARY HYPERTHYROIDISM
     Dosage: 25 MG, UNK
     Route: 048
     Dates: start: 20110107, end: 20110303
  16. MEGESTROL                          /00082602/ [Concomitant]
     Dosage: UNK
     Route: 065

REACTIONS (1)
  - HAEMOGLOBIN DECREASED [None]
